FAERS Safety Report 9413167 (Version 1)
Quarter: 2013Q2

REPORT INFORMATION
  Report Type: Spontaneous
  Country: GB (occurrence: None)
  Receive Date: 20130502
  Receipt Date: 20130502
  Transmission Date: 20140414
  Serious: Yes (Hospitalization)
  Sender: FDA-Public Use
  Company Number: QR69709-02

PATIENT
  Age: 69 Year
  Sex: Male
  Weight: 77 kg

DRUGS (1)
  1. GAMMAPLEX [Suspect]
     Indication: CHRONIC LYMPHOCYTIC LEUKAEMIA
     Dosage: 15 GRMS IV
     Route: 042
     Dates: start: 20130205, end: 20130205

REACTIONS (3)
  - Urinary tract infection [None]
  - Sepsis [None]
  - Body temperature increased [None]
